FAERS Safety Report 14487980 (Version 1)
Quarter: 2018Q1

REPORT INFORMATION
  Report Type: Spontaneous
  Country: DE (occurrence: DE)
  Receive Date: 20180205
  Receipt Date: 20180205
  Transmission Date: 20180509
  Serious: Yes (Hospitalization)
  Sender: FDA-Public Use
  Company Number: DE-MYLANLABS-2018M1006848

PATIENT
  Age: 52 Year
  Sex: Male

DRUGS (2)
  1. INSULIN [Concomitant]
     Active Substance: INSULIN NOS
     Indication: INSULIN-REQUIRING TYPE 2 DIABETES MELLITUS
     Dosage: UNK
     Route: 065
  2. PREDNISONE. [Suspect]
     Active Substance: PREDNISONE
     Indication: THROMBOCYTOPENIA
     Dosage: 1 MG/KG, UNK
     Route: 065

REACTIONS (22)
  - Rales [Recovered/Resolved]
  - C-reactive protein increased [Recovered/Resolved]
  - Central nervous system lesion [Recovered/Resolved]
  - Paraesthesia [Recovered/Resolved]
  - Atypical pneumonia [Recovered/Resolved]
  - Nausea [Recovered/Resolved]
  - Aspergillus infection [Recovered/Resolved]
  - Cough [Recovered/Resolved]
  - Headache [Recovered/Resolved]
  - Granuloma [Recovered/Resolved]
  - Partial seizures [Recovered/Resolved]
  - Bronchoscopy abnormal [Recovered/Resolved]
  - Tracheitis [Recovered/Resolved]
  - Vomiting [Recovered/Resolved]
  - Eosinophilia [Recovered/Resolved]
  - Leukocytosis [Recovered/Resolved]
  - Neutrophilia [Recovered/Resolved]
  - Brain abscess [Recovered/Resolved]
  - Muscular weakness [Recovered/Resolved]
  - Cerebral aspergillosis [Recovered/Resolved]
  - General physical health deterioration [Recovered/Resolved]
  - Pyrexia [Recovered/Resolved]
